FAERS Safety Report 8352019-6 (Version None)
Quarter: 2012Q2

REPORT INFORMATION
  Report Type: 
  Country: None (occurrence: None)
  Receive Date: 20120509
  Receipt Date: 20120419
  Transmission Date: 20120825
  Serious: Yes (Death)
  Sender: FDA-Public Use
  Company Number: AUR-APL-2012-02124

PATIENT
  Age: 50 Year
  Sex: Male

DRUGS (6)
  1. NELFINAVIR MESYLATE [Suspect]
     Indication: PRODUCT USED FOR UNKNOWN INDICATION
  2. DIDANOSINE [Suspect]
     Indication: PRODUCT USED FOR UNKNOWN INDICATION
     Dosage: 400 MG (400 MG, 1 IN 1 D)
  3. EFAVIRENZ [Suspect]
     Indication: PRODUCT USED FOR UNKNOWN INDICATION
  4. NEVIRAPINE [Suspect]
     Indication: PRODUCT USED FOR UNKNOWN INDICATION
  5. LOPINAVIR (LOPINAVIR) [Suspect]
     Indication: PRODUCT USED FOR UNKNOWN INDICATION
  6. ZIDOVUDINE [Suspect]
     Indication: PRODUCT USED FOR UNKNOWN INDICATION
     Dosage: 600 MG (300 MG, 2 IN 1 D)

REACTIONS (23)
  - CHOLESTASIS [None]
  - NODULAR REGENERATIVE HYPERPLASIA [None]
  - INSULIN RESISTANCE [None]
  - BLOOD IRON DECREASED [None]
  - ILEAL ULCER [None]
  - ASCITES [None]
  - COLLATERAL CIRCULATION [None]
  - GENERAL PHYSICAL HEALTH DETERIORATION [None]
  - CACHEXIA [None]
  - WEIGHT DECREASED [None]
  - INTESTINAL VILLI ATROPHY [None]
  - ILEITIS [None]
  - PORTAL VEIN THROMBOSIS [None]
  - LIPOATROPHY [None]
  - METABOLIC DISORDER [None]
  - HYPERGLYCAEMIA [None]
  - GASTRITIS ATROPHIC [None]
  - DIARRHOEA [None]
  - SERUM FERRITIN DECREASED [None]
  - GYNAECOMASTIA [None]
  - LIVER DISORDER [None]
  - OSTEOPOROTIC FRACTURE [None]
  - HYPOALBUMINAEMIA [None]
